FAERS Safety Report 8201386-2 (Version None)
Quarter: 2012Q1

REPORT INFORMATION
  Report Type: 
  Country: None (occurrence: None)
  Receive Date: 20120312
  Receipt Date: 20120302
  Transmission Date: 20120608
  Serious: Yes (Other)
  Sender: FDA-Public Use
  Company Number: JP-GENZYME-THYM-1002926

PATIENT
  Sex: Female
  Weight: 52 kg

DRUGS (32)
  1. DIAZEPAM [Concomitant]
     Indication: PANIC DISORDER
     Dosage: UNK
     Route: 065
     Dates: start: 20090405, end: 20090417
  2. SOYBEAN OIL [Concomitant]
     Indication: SUPPLEMENTATION THERAPY
     Dosage: UNK
     Route: 065
     Dates: start: 20090410, end: 20090427
  3. LOXOPROFEN SODIUM [Concomitant]
     Indication: DYSMENORRHOEA
     Dosage: UNK
     Route: 065
     Dates: start: 20081001
  4. CYCLOPHOSPHAMIDE [Suspect]
     Indication: BONE MARROW CONDITIONING REGIMEN
     Dosage: UNK
     Route: 065
     Dates: start: 20090404, end: 20090407
  5. RAMOSETRON HYDROCHLORIDE [Concomitant]
     Indication: PROPHYLAXIS OF NAUSEA AND VOMITING
     Dosage: UNK
     Route: 065
     Dates: start: 20090404, end: 20090407
  6. HYDROXYZINE PAMOATE [Concomitant]
     Indication: PANIC DISORDER
     Dosage: UNK
     Route: 065
     Dates: start: 20090405, end: 20090415
  7. METHOTREXATE [Concomitant]
     Indication: PROPHYLAXIS AGAINST GRAFT VERSUS HOST DISEASE
     Dosage: UNK
     Route: 065
     Dates: start: 20090410, end: 20090412
  8. MICAFUNGIN SODIUM [Concomitant]
     Indication: ANTIFUNGAL PROPHYLAXIS
     Dosage: UNK
     Route: 065
     Dates: start: 20090405, end: 20090425
  9. ACYCLOVIR [Concomitant]
     Indication: ANTIVIRAL PROPHYLAXIS
     Dosage: UNK
     Route: 065
     Dates: start: 20090402
  10. HEPARIN [Concomitant]
     Indication: PROPHYLAXIS
     Dosage: UNK
     Route: 065
     Dates: start: 20090617, end: 20090617
  11. MESNA [Concomitant]
     Indication: INFECTION PROPHYLAXIS
     Dosage: UNK
     Route: 065
     Dates: start: 20090404, end: 20090407
  12. HALOPERIDOL [Concomitant]
     Indication: PANIC DISORDER
     Dosage: UNK
     Route: 065
     Dates: start: 20090406, end: 20090417
  13. CLOSTRIDIUM BUTYRICUM [Concomitant]
     Indication: GASTROINTESTINAL DISORDER THERAPY
     Dosage: UNK
     Route: 065
     Dates: start: 20090402, end: 20090712
  14. CLOSTRIDIUM BUTYRICUM [Concomitant]
     Indication: PROPHYLAXIS
  15. LANSOPRAZOLE [Concomitant]
     Indication: PROPHYLAXIS AGAINST GASTROINTESTINAL ULCER
     Dosage: UNK
     Route: 065
     Dates: start: 20090407
  16. METHYLPREDNISOLONE [Concomitant]
     Indication: PREMEDICATION
     Dosage: UNK
     Route: 065
     Dates: start: 20090403, end: 20090407
  17. MENATETRENONE [Concomitant]
     Indication: HAEMORRHAGE PROPHYLAXIS
     Dosage: UNK
     Route: 065
     Dates: start: 20090408, end: 20090427
  18. HYDROPHILIC [Concomitant]
     Indication: PROPHYLAXIS
     Dosage: UNK
     Route: 065
     Dates: start: 20090409, end: 20090617
  19. SULFAMETHOPRIM [Concomitant]
     Indication: ANTIFUNGAL PROPHYLAXIS
     Dosage: UNK
     Route: 065
     Dates: start: 20090505
  20. FUROSEMIDE [Suspect]
     Indication: WEIGHT INCREASED
     Dosage: UNK
     Route: 065
     Dates: start: 20090404, end: 20090409
  21. CYCLOSPORINE [Concomitant]
     Dosage: UNK
     Route: 065
     Dates: start: 20090922
  22. ITRACONAZOLE [Concomitant]
     Indication: ANTIFUNGAL PROPHYLAXIS
     Dosage: UNK
     Route: 065
     Dates: start: 20090512
  23. PLATELETS [Concomitant]
     Indication: APLASTIC ANAEMIA
     Dosage: UNK
     Route: 065
     Dates: start: 20090404, end: 20090425
  24. FLUDARA [Concomitant]
     Indication: BONE MARROW CONDITIONING REGIMEN
     Dosage: UNK
     Route: 065
     Dates: start: 20090404, end: 20090407
  25. FEXOFENADINE HYDROCHLORIDE [Concomitant]
     Indication: ALLERGY PROPHYLAXIS
     Dosage: UNK
     Route: 065
     Dates: start: 20090405, end: 20090425
  26. FLUCONAZOLE [Concomitant]
     Indication: ANTIFUNGAL PROPHYLAXIS
     Dosage: UNK
     Route: 065
     Dates: start: 20090402, end: 20090511
  27. REBAMIPIDE [Concomitant]
     Indication: DYSMENORRHOEA
     Dosage: UNK
     Route: 065
     Dates: start: 20081001
  28. BUTENAFINE HYDROCHLORIDE [Concomitant]
     Indication: TINEA INFECTION
     Dosage: UNK
     Route: 065
     Dates: start: 20090430
  29. THYMOGLOBULIN [Suspect]
     Indication: BONE MARROW CONDITIONING REGIMEN
     Dosage: 125 MG, QD
     Route: 042
     Dates: start: 20090403, end: 20090405
  30. CYCLOSPORINE [Concomitant]
     Indication: PROPHYLAXIS AGAINST GRAFT VERSUS HOST DISEASE
     Dosage: UNK
     Route: 065
     Dates: start: 20090408, end: 20090507
  31. LEVOFLOXACIN [Concomitant]
     Indication: INFECTION PROPHYLAXIS
     Dosage: UNK
     Route: 065
     Dates: start: 20090402, end: 20090407
  32. RED BLOOD CELLS [Concomitant]
     Indication: APLASTIC ANAEMIA
     Dosage: UNK
     Route: 065
     Dates: start: 20090403, end: 20090424

REACTIONS (10)
  - HEPATIC FUNCTION ABNORMAL [None]
  - CYTOMEGALOVIRUS TEST POSITIVE [None]
  - NAUSEA [None]
  - HYPOKALAEMIA [None]
  - WEIGHT INCREASED [None]
  - VOMITING [None]
  - PYREXIA [None]
  - FEBRILE NEUTROPENIA [None]
  - NEUTROPENIA [None]
  - INSOMNIA [None]
